FAERS Safety Report 8457337-9 (Version None)
Quarter: 2012Q2

REPORT INFORMATION
  Report Type: 
  Country: None (occurrence: None)
  Receive Date: 20120621
  Receipt Date: 20120608
  Transmission Date: 20120825
  Serious: No
  Sender: FDA-Public Use
  Company Number: US-ASTRAZENECA-2012SE38587

PATIENT
  Age: 67 Year
  Sex: Female
  Weight: 81.6 kg

DRUGS (14)
  1. NEXIUM [Suspect]
     Indication: GASTROOESOPHAGEAL REFLUX DISEASE
     Route: 048
  2. EFFEXOR [Concomitant]
  3. LASIX [Concomitant]
  4. ACTINEL [Concomitant]
  5. CITRICAL [Concomitant]
  6. OXYCODONE HCL [Concomitant]
     Indication: SCIATICA
  7. VALIUM [Concomitant]
     Indication: MUSCLE SPASMS
  8. NEXIUM [Suspect]
     Indication: OESOPHAGITIS
     Route: 048
  9. PRILOSEC [Suspect]
     Route: 048
  10. POTASSIUM ACETATE [Concomitant]
  11. DIOVAN [Concomitant]
  12. XANAX [Concomitant]
  13. PROBIOTICS [Concomitant]
  14. CENTRUM SENIOR [Concomitant]
     Indication: VITAMIN SUPPLEMENTATION

REACTIONS (2)
  - ABDOMINAL DISCOMFORT [None]
  - OSTEOPENIA [None]
